FAERS Safety Report 22781307 (Version 2)
Quarter: 2024Q2

REPORT INFORMATION
  Report Type: Report from Study
  Country: DE (occurrence: DE)
  Receive Date: 20230803
  Receipt Date: 20240516
  Transmission Date: 20240715
  Serious: No
  Sender: FDA-Public Use
  Company Number: DE-TAKEDA-2022TUS048291

PATIENT
  Age: 55 Year
  Sex: Female
  Weight: 56 kg

DRUGS (26)
  1. PARATHYROID HORMONE [Suspect]
     Active Substance: PARATHYROID HORMONE
     Indication: Hypoparathyroidism
     Dosage: 50 MICROGRAM, QD
     Route: 042
     Dates: start: 20210831, end: 20211013
  2. PARATHYROID HORMONE [Suspect]
     Active Substance: PARATHYROID HORMONE
     Indication: Hypoparathyroidism
     Dosage: 50 MICROGRAM, QD
     Route: 042
     Dates: start: 20210831, end: 20211013
  3. PARATHYROID HORMONE [Suspect]
     Active Substance: PARATHYROID HORMONE
     Indication: Hypoparathyroidism
     Dosage: 50 MICROGRAM, QD
     Route: 042
     Dates: start: 20210831, end: 20211013
  4. PARATHYROID HORMONE [Suspect]
     Active Substance: PARATHYROID HORMONE
     Dosage: 75 MICROGRAM, QD
     Route: 042
     Dates: start: 20211014
  5. PARATHYROID HORMONE [Suspect]
     Active Substance: PARATHYROID HORMONE
     Dosage: 75 MICROGRAM, QD
     Route: 042
     Dates: start: 20211014
  6. PARATHYROID HORMONE [Suspect]
     Active Substance: PARATHYROID HORMONE
     Dosage: 75 MICROGRAM, QD
     Route: 042
     Dates: start: 20211014
  7. LEVOTHYROXINE SODIUM [Concomitant]
     Active Substance: LEVOTHYROXINE SODIUM
     Indication: Hypothyroidism
     Dosage: UNK
     Route: 048
     Dates: start: 1986
  8. FERRO-SANOL DUODENAL [Concomitant]
     Active Substance: FERROUS GLYCINE SULFATE
     Indication: Mineral supplementation
     Dosage: UNK
     Route: 048
     Dates: start: 2012
  9. CETIRIZINE HYDROCHLORIDE [Concomitant]
     Active Substance: CETIRIZINE HYDROCHLORIDE
     Indication: Antiallergic therapy
     Dosage: UNK
     Route: 055
     Dates: start: 2019
  10. BUDESONIDE [Concomitant]
     Active Substance: BUDESONIDE
     Indication: Asthma
     Dosage: UNK
     Route: 055
     Dates: start: 2019
  11. CELECOXIB 1A PHARMA [Concomitant]
     Indication: Arthralgia
     Dosage: UNK
     Route: 048
     Dates: start: 2019, end: 20220617
  12. CELECOXIB 1A PHARMA [Concomitant]
     Indication: Thrombophlebitis
  13. CELECOXIB 1A PHARMA [Concomitant]
     Indication: Pain
  14. PREGABALIN [Concomitant]
     Active Substance: PREGABALIN
     Indication: Anxiety disorder
     Dosage: UNK
     Route: 048
     Dates: start: 20200109, end: 20200830
  15. PREGABALIN [Concomitant]
     Active Substance: PREGABALIN
     Dosage: UNK
     Route: 048
     Dates: start: 20210824
  16. LIOTHYRONINE HYDROCHLORIDE [Concomitant]
     Active Substance: LIOTHYRONINE HYDROCHLORIDE
     Indication: Hypothyroidism
     Dosage: UNK
     Route: 048
     Dates: start: 20200831
  17. TIANEPTINE SODIUM [Concomitant]
     Active Substance: TIANEPTINE SODIUM
     Indication: Anxiety disorder
     Dosage: UNK
     Route: 048
     Dates: start: 20201030, end: 20210611
  18. XARELTO [Concomitant]
     Active Substance: RIVAROXABAN
     Indication: Anticoagulant therapy
     Dosage: UNK
     Route: 048
     Dates: start: 20210309
  19. ETORICOXIB [Concomitant]
     Active Substance: ETORICOXIB
     Indication: Arthralgia
     Dosage: UNK
     Route: 048
     Dates: start: 20211215, end: 20220120
  20. ETORICOXIB [Concomitant]
     Active Substance: ETORICOXIB
     Indication: Pain
     Dosage: UNK
     Route: 048
     Dates: start: 20220209, end: 20220617
  21. ETORICOXIB [Concomitant]
     Active Substance: ETORICOXIB
     Indication: Malformation venous
     Dosage: UNK
     Route: 048
     Dates: start: 20221020, end: 20230105
  22. ETORICOXIB [Concomitant]
     Active Substance: ETORICOXIB
     Dosage: UNK
     Route: 048
     Dates: start: 20230517
  23. NALOXONE HYDROCHLORIDE\TILIDINE HYDROCHLORIDE [Concomitant]
     Active Substance: NALOXONE HYDROCHLORIDE\TILIDINE HYDROCHLORIDE
     Indication: Thrombophlebitis
     Dosage: UNK
     Route: 048
     Dates: start: 20211117
  24. TRIMIPRAMINE [Concomitant]
     Active Substance: TRIMIPRAMINE
     Indication: Anxiety disorder
     Dosage: UNK
     Route: 048
     Dates: start: 20220210, end: 20220530
  25. AGOMELATINE [Concomitant]
     Active Substance: AGOMELATINE
     Indication: Fatigue
     Dosage: UNK
     Route: 048
     Dates: start: 20230126
  26. CORTISONE ACETATE [Concomitant]
     Active Substance: CORTISONE ACETATE
     Indication: Nasopharyngitis
     Dosage: UNK
     Route: 048
     Dates: start: 202302, end: 202302

REACTIONS (2)
  - Malformation venous [Recovered/Resolved]
  - Fibromyalgia [Not Recovered/Not Resolved]

NARRATIVE: CASE EVENT DATE: 20220615
